FAERS Safety Report 9387128 (Version 1)
Quarter: 2013Q3

REPORT INFORMATION
  Report Type: Spontaneous
  Country: GB (occurrence: None)
  Receive Date: 20130702
  Receipt Date: 20130702
  Transmission Date: 20140515
  Serious: Yes (Other)
  Sender: FDA-Public Use
  Company Number: AUR-APL-2013-05365

PATIENT
  Age: 34 Year
  Sex: Male
  Weight: 110.2 kg

DRUGS (3)
  1. AMOXICILLIN (AMOXICILLIN) [Suspect]
     Indication: INFECTION
     Dosage: (250 MG, 3 IN 1 D)
     Route: 048
     Dates: start: 20130607, end: 20130611
  2. TESTOSTERONE (TESTOSTERONE) [Concomitant]
  3. THYROID (THYROID) [Concomitant]

REACTIONS (3)
  - Depression [None]
  - Insomnia [None]
  - Fatigue [None]
